FAERS Safety Report 7366626-0 (Version None)
Quarter: 2011Q1

REPORT INFORMATION
  Report Type: 
  Country: None (occurrence: None)
  Receive Date: 20110311
  Receipt Date: 20110225
  Transmission Date: 20110831
  Serious: Yes (Other)
  Sender: FDA-Public Use
  Company Number: TPA2011A00698

PATIENT
  Sex: Female

DRUGS (1)
  1. ULORIC [Suspect]
     Indication: GOUT

REACTIONS (1)
  - GANGRENE [None]
